FAERS Safety Report 18359751 (Version 1)
Quarter: 2020Q4

REPORT INFORMATION
  Report Type: Spontaneous
  Country: US (occurrence: US)
  Receive Date: 20201008
  Receipt Date: 20201008
  Transmission Date: 20210114
  Serious: No
  Sender: FDA-Public Use
  Company Number: US-LEXICON PHARMACEUTICALS, INC-20-1606-00756

PATIENT
  Age: 61 Year
  Sex: Male

DRUGS (8)
  1. ASPIRIN ADULT [Concomitant]
  2. FLONASE [Concomitant]
     Active Substance: FLUTICASONE PROPIONATE
  3. MULTIVITAMINS [Concomitant]
     Active Substance: VITAMINS
  4. XERMELO [Suspect]
     Active Substance: TELOTRISTAT ETHYL
     Indication: METASTASES TO LUNG
     Dates: start: 20200826
  5. LUPRON DEPOT [Concomitant]
     Active Substance: LEUPROLIDE ACETATE
  6. OCTREOTIDE ACETATE. [Concomitant]
     Active Substance: OCTREOTIDE ACETATE
  7. CIALIS [Concomitant]
     Active Substance: TADALAFIL
  8. ZOLPIDEM TARTRATE ER [Concomitant]
     Active Substance: ZOLPIDEM TARTRATE

REACTIONS (2)
  - Abdominal pain upper [Recovered/Resolved]
  - Off label use [Not Recovered/Not Resolved]

NARRATIVE: CASE EVENT DATE: 20200826
